FAERS Safety Report 9736215 (Version 2)
Quarter: 2013Q4

REPORT INFORMATION
  Report Type: Spontaneous
  Country: FR (occurrence: FR)
  Receive Date: 20131206
  Receipt Date: 20131206
  Transmission Date: 20140711
  Serious: Yes (Death, Life-Threatening)
  Sender: FDA-Public Use
  Company Number: FR-ROCHE-1284673

PATIENT
  Age: 84 Year
  Sex: Male

DRUGS (19)
  1. ROCEPHINE [Suspect]
     Indication: RESPIRATORY DISTRESS
     Route: 065
     Dates: start: 20130818, end: 20130821
  2. MOPRAL (FRANCE) [Suspect]
     Indication: PRODUCT USED FOR UNKNOWN INDICATION
     Route: 065
     Dates: end: 20130827
  3. INEXIUM [Suspect]
     Indication: PRODUCT USED FOR UNKNOWN INDICATION
     Route: 065
     Dates: end: 20130920
  4. OFLOCET [Suspect]
     Indication: COUGH
     Route: 065
     Dates: start: 20130729, end: 20130812
  5. CIFLOX (FRANCE) [Suspect]
     Indication: RESPIRATORY DISTRESS
     Route: 065
     Dates: start: 20130818, end: 20130821
  6. TAZOCILLINE [Suspect]
     Indication: PRODUCT USED FOR UNKNOWN INDICATION
     Route: 065
     Dates: start: 20130821, end: 20130923
  7. RULID [Suspect]
     Indication: PRODUCT USED FOR UNKNOWN INDICATION
     Route: 065
     Dates: start: 20130821, end: 20130829
  8. CORDARONE [Suspect]
     Indication: PRODUCT USED FOR UNKNOWN INDICATION
     Route: 065
     Dates: start: 20130828, end: 20130923
  9. LASILIX [Suspect]
     Indication: PRODUCT USED FOR UNKNOWN INDICATION
     Route: 065
     Dates: start: 20130826, end: 20130927
  10. MONO TILDIEM [Concomitant]
     Route: 065
     Dates: end: 20130927
  11. JOSIR [Concomitant]
     Route: 065
     Dates: end: 20130927
  12. INORIAL [Concomitant]
     Route: 065
     Dates: end: 20130927
  13. SPIRIVA [Concomitant]
     Route: 065
     Dates: end: 20130927
  14. ARESTAL [Concomitant]
     Route: 065
     Dates: end: 20130927
  15. PNEUMOREL [Concomitant]
     Route: 065
     Dates: end: 20130927
  16. DEXERYL (GLYCEROL/WHITE SOFT PARAFFIN/LIQUID PARAFFIN) [Concomitant]
     Route: 065
     Dates: end: 20130927
  17. CALCIPARINE [Concomitant]
     Route: 065
     Dates: start: 20130828
  18. PREVISCAN (FRANCE) [Concomitant]
     Route: 065
     Dates: start: 20130828, end: 20130927
  19. CANCIDAS [Concomitant]
     Route: 065
     Dates: end: 20130927

REACTIONS (5)
  - Agranulocytosis [Fatal]
  - Septic shock [Fatal]
  - Bone marrow failure [Fatal]
  - Multi-organ failure [Fatal]
  - Death [Fatal]
